FAERS Safety Report 13267239 (Version 1)
Quarter: 2017Q1

REPORT INFORMATION
  Report Type: Spontaneous
  Country: US (occurrence: US)
  Receive Date: 20170224
  Receipt Date: 20170224
  Transmission Date: 20170428
  Serious: Yes (Other)
  Sender: FDA-Public Use
  Company Number: US-TEVA-742613ACC

PATIENT
  Age: 37 Year
  Sex: Female
  Weight: 66.28 kg

DRUGS (2)
  1. PARAGARD T 380A [Suspect]
     Active Substance: COPPER
     Indication: CONTRACEPTION
     Dates: start: 20151009, end: 20170206
  2. PAXEL [Concomitant]
     Active Substance: PACLITAXEL
     Indication: DEPRESSION

REACTIONS (3)
  - Vaginal haemorrhage [Unknown]
  - Dyspareunia [Unknown]
  - Device dislocation [Recovered/Resolved]

NARRATIVE: CASE EVENT DATE: 201608
